FAERS Safety Report 4474494-X (Version None)
Quarter: 2004Q4

REPORT INFORMATION
  Report Type: 
  Country: None (occurrence: None)
  Receive Date: 20041014
  Receipt Date: 20041011
  Transmission Date: 20050328
  Serious: Yes (Hospitalization)
  Sender: FDA-Public Use
  Company Number: FR-SOLVAY-00204003647

PATIENT
  Age: 41 Year
  Sex: Male

DRUGS (2)
  1. 5-ASA (MANUFACTURER UNKNOWN) [Suspect]
     Indication: CROHN'S DISEASE
     Dosage: DAILY DOSE: 4 GRAM(S)
     Route: 048
     Dates: start: 20000101, end: 20000101
  2. 5-ASA (MANUFACTURER UNKNOWN) [Suspect]
     Dosage: DAILY DOSE: 1 GRAM(S)
     Route: 054
     Dates: start: 20000101, end: 20000101

REACTIONS (11)
  - ABDOMINAL PAIN LOWER [None]
  - ABDOMINAL PAIN UPPER [None]
  - BLOOD AMYLASE INCREASED [None]
  - DIARRHOEA [None]
  - DISEASE RECURRENCE [None]
  - DRUG INEFFECTIVE [None]
  - HAEMATOCHEZIA [None]
  - LIPASE INCREASED [None]
  - OEDEMATOUS PANCREATITIS [None]
  - PANCREATITIS ACUTE [None]
  - PROCTITIS [None]
